FAERS Safety Report 8797502 (Version 2)
Quarter: 2012Q4

REPORT INFORMATION
  Report Type: 
  Country: US (occurrence: US)
  Receive Date: 20120920
  Receipt Date: 20120921
  Transmission Date: 20130627
  Serious: Yes (Other)
  Sender: FDA-Public Use
  Company Number: US-PFIZER INC-2012230832

PATIENT
  Age: 61 Year
  Sex: Female
  Weight: 109 kg

DRUGS (9)
  1. LYRICA [Suspect]
     Indication: FIBROMYALGIA
     Dosage: 50 mg, daily
     Route: 048
     Dates: start: 20120812, end: 201209
  2. LYRICA [Suspect]
     Indication: PAIN
     Dosage: 75 mg, daily
     Route: 048
     Dates: start: 201209
  3. COLACE [Concomitant]
     Indication: CONSTIPATION
     Dosage: 100 mg, daily
     Dates: start: 201209
  4. COREG [Concomitant]
     Dosage: 6.25 mg, daily
  5. SIMVASTATIN [Concomitant]
     Dosage: 20 mg, daily
  6. LASIX [Concomitant]
     Dosage: 20 mg, 2x/day
  7. DIGOXIN [Concomitant]
     Indication: BLOOD PRESSURE ABNORMAL
     Dosage: 0.125 mg, as needed
  8. WARFARIN [Concomitant]
     Dosage: 6 mg on Wednesday, Thursday, Saturday and at 3 mg on Monday, Tuesday, Friday, Sunday
  9. VITAMIN D [Concomitant]
     Dosage: 1000 IU, weekly

REACTIONS (8)
  - Dyspnoea [Not Recovered/Not Resolved]
  - Cardiac disorder [Unknown]
  - Oedema [Unknown]
  - International normalised ratio abnormal [Unknown]
  - Malaise [Not Recovered/Not Resolved]
  - Constipation [Not Recovered/Not Resolved]
  - Abdominal discomfort [Not Recovered/Not Resolved]
  - Wheezing [Unknown]
